FAERS Safety Report 16995567 (Version 1)
Quarter: 2019Q4

REPORT INFORMATION
  Report Type: Spontaneous
  Country: US (occurrence: US)
  Receive Date: 20191105
  Receipt Date: 20191105
  Transmission Date: 20200122
  Serious: No
  Sender: FDA-Public Use
  Company Number: US-PFIZER INC-2019475100

PATIENT
  Sex: Female

DRUGS (5)
  1. LENVIMA [Concomitant]
     Active Substance: LENVATINIB
     Indication: THYROID CANCER
     Dosage: 10 MG, DAILY
     Route: 048
     Dates: start: 201811
  2. LENVIMA [Concomitant]
     Active Substance: LENVATINIB
     Dosage: 10 MG, EVERY OTHER DAY
     Route: 048
     Dates: start: 20190801
  3. LOMOTIL [Suspect]
     Active Substance: ATROPINE SULFATE\DIPHENOXYLATE HYDROCHLORIDE
     Dosage: UNK
  4. LENVIMA [Concomitant]
     Active Substance: LENVATINIB
     Dosage: 14 MG, DAILY
     Route: 048
     Dates: start: 20190117, end: 20190731
  5. LENVIMA [Concomitant]
     Active Substance: LENVATINIB
     Dosage: 14 MG, EVERY OTHER DAY
     Route: 048
     Dates: start: 20190801

REACTIONS (1)
  - Migraine [Unknown]
